FAERS Safety Report 20054207 (Version 4)
Quarter: 2023Q1

REPORT INFORMATION
  Report Type: Report from Study
  Country: US (occurrence: US)
  Receive Date: 20211110
  Receipt Date: 20230201
  Transmission Date: 20230417
  Serious: Yes (Other)
  Sender: FDA-Public Use
  Company Number: US-KYOWAKIRIN-2021BKK018708

PATIENT

DRUGS (3)
  1. CRYSVITA [Suspect]
     Active Substance: BUROSUMAB-TWZA
     Indication: Hereditary hypophosphataemic rickets
     Dosage: 40 MG, EVERY 28 DAYS
     Route: 058
     Dates: start: 20190420
  2. CRYSVITA [Suspect]
     Active Substance: BUROSUMAB-TWZA
     Dosage: 40 MG, EVERY 28 DAYS
     Route: 058
     Dates: start: 20190420
  3. CRYSVITA [Suspect]
     Active Substance: BUROSUMAB-TWZA
     Dosage: 40 MG, EVERY 28 DAYS
     Route: 058
     Dates: start: 20190420

REACTIONS (9)
  - Femur fracture [Unknown]
  - Diarrhoea [Not Recovered/Not Resolved]
  - Pain in extremity [Unknown]
  - Arthralgia [Unknown]
  - Hyperparathyroidism [Unknown]
  - Condition aggravated [Unknown]
  - Blood phosphorus decreased [Unknown]
  - Restless legs syndrome [Unknown]
  - Headache [Unknown]

NARRATIVE: CASE EVENT DATE: 20190101
